FAERS Safety Report 12382531 (Version 1)
Quarter: 2016Q2

REPORT INFORMATION
  Report Type: Spontaneous
  Country: US (occurrence: US)
  Receive Date: 20160518
  Receipt Date: 20160518
  Transmission Date: 20160815
  Serious: Yes (Hospitalization, Disabling, Other)
  Sender: FDA-Public Use
  Company Number: US-TEVA-659973USA

PATIENT
  Sex: Female

DRUGS (1)
  1. AZITHROMYCIN ANHYDROUS. [Suspect]
     Active Substance: AZITHROMYCIN ANHYDROUS
     Indication: SINUSITIS
     Dosage: PRESCRIBED 6 TABLETS
     Route: 065

REACTIONS (22)
  - Excoriation [Unknown]
  - Perihepatitis [Unknown]
  - Nausea [Unknown]
  - Hepatitis acute [Unknown]
  - Jaundice [Unknown]
  - Oedema peripheral [Unknown]
  - Confusional state [Unknown]
  - Autoimmune hepatitis [Unknown]
  - Hepatitis cholestatic [Unknown]
  - Hepatic encephalopathy [Unknown]
  - Blood disorder [Unknown]
  - Abdominal pain upper [Unknown]
  - Liver disorder [Unknown]
  - Liver function test abnormal [Unknown]
  - Liver function test increased [Unknown]
  - Metabolic disorder [Unknown]
  - Ocular icterus [Unknown]
  - Hepatic cirrhosis [Unknown]
  - Cholestasis [Unknown]
  - Pelvic inflammatory disease [Unknown]
  - Tachycardia [Unknown]
  - Fibrosis [Unknown]

NARRATIVE: CASE EVENT DATE: 2015
